FAERS Safety Report 15504239 (Version 1)
Quarter: 2018Q4

REPORT INFORMATION
  Report Type: Spontaneous
  Country: US (occurrence: US)
  Receive Date: 20181009
  Receipt Date: 20181009
  Transmission Date: 20190205
  Serious: Yes (Life-Threatening, Disabling)
  Sender: FDA-Public Use
  Company Number: None

PATIENT
  Age: 40 Year
  Sex: Female
  Weight: 40.5 kg

DRUGS (9)
  1. MULTIVITAMIN WITH IRON [Concomitant]
     Active Substance: IRON\VITAMINS
  2. COQ 10 [Concomitant]
     Active Substance: UBIDECARENONE
  3. LEVAQUIN [Suspect]
     Active Substance: LEVOFLOXACIN
     Indication: COUGH
     Route: 048
  4. NAC [Concomitant]
  5. LEVAQUIN [Suspect]
     Active Substance: LEVOFLOXACIN
     Indication: EAR INFECTION
     Route: 048
  6. COLLAGEN [Concomitant]
     Active Substance: COLLAGEN
  7. MACNESIUM [Concomitant]
  8. TYLENOL [Suspect]
     Active Substance: ACETAMINOPHEN
  9. TUMERIC [Concomitant]
     Active Substance: HERBALS\TURMERIC

REACTIONS (3)
  - Anaphylactic reaction [None]
  - Pertussis [None]
  - Tendon disorder [None]

NARRATIVE: CASE EVENT DATE: 20180627
